FAERS Safety Report 9735562 (Version 2)
Quarter: 2015Q3

REPORT INFORMATION
  Report Type: Spontaneous
  Country: US (occurrence: US)
  Receive Date: 20131206
  Receipt Date: 20150804
  Transmission Date: 20151125
  Serious: No
  Sender: FDA-Public Use
  Company Number: US-GILEAD-2009-0023975

PATIENT
  Age: 76 Year
  Sex: Male

DRUGS (9)
  1. FUROSEMIDE. [Concomitant]
     Active Substance: FUROSEMIDE
  2. PROZAC [Concomitant]
     Active Substance: FLUOXETINE HYDROCHLORIDE
  3. MIRAPEX [Concomitant]
     Active Substance: PRAMIPEXOLE DIHYDROCHLORIDE
  4. LETAIRIS [Suspect]
     Active Substance: AMBRISENTAN
     Indication: PULMONARY ARTERIAL HYPERTENSION
     Route: 048
     Dates: start: 20090223
  5. WARFARIN [Concomitant]
     Active Substance: WARFARIN
  6. RAMIPRIL. [Concomitant]
     Active Substance: RAMIPRIL
  7. ALBUTEROL. [Concomitant]
     Active Substance: ALBUTEROL
  8. VIAGRA [Concomitant]
     Active Substance: SILDENAFIL CITRATE
  9. CARVEDILOL. [Concomitant]
     Active Substance: CARVEDILOL

REACTIONS (2)
  - Cough [Unknown]
  - Dry throat [Unknown]
